FAERS Safety Report 14844043 (Version 1)
Quarter: 2018Q2

REPORT INFORMATION
  Report Type: Spontaneous
  Country: GB (occurrence: GB)
  Receive Date: 20180503
  Receipt Date: 20180503
  Transmission Date: 20180711
  Serious: Yes (Life-Threatening, Hospitalization, Other)
  Sender: FDA-Public Use
  Company Number: GB-PFIZER INC-2018178543

PATIENT
  Age: 50 Year
  Sex: Male

DRUGS (1)
  1. PREGABALIN. [Suspect]
     Active Substance: PREGABALIN
     Dosage: 1050 MG, 1X/DAY
     Route: 048
     Dates: start: 20171201, end: 20180317

REACTIONS (11)
  - Constipation [Not Recovered/Not Resolved]
  - Vomiting [Unknown]
  - Aspiration [Unknown]
  - Acute kidney injury [Recovered/Resolved]
  - Aggression [Unknown]
  - Depressed level of consciousness [Not Recovered/Not Resolved]
  - Withdrawal syndrome [Unknown]
  - Prescribed overdose [Unknown]
  - Loss of consciousness [Unknown]
  - Sepsis [Unknown]
  - Lower respiratory tract infection [Unknown]

NARRATIVE: CASE EVENT DATE: 20180317
